FAERS Safety Report 26059585 (Version 1)
Quarter: 2025Q4

REPORT INFORMATION
  Report Type: Spontaneous
  Country: EU (occurrence: EU)
  Receive Date: 20251118
  Receipt Date: 20251118
  Transmission Date: 20260117
  Serious: Yes (Hospitalization, Other)
  Sender: NOVARTIS
  Company Number: EU-002147023-NVSC2025ES154731

PATIENT
  Age: 60 Year
  Sex: Male

DRUGS (2)
  1. IPTACOPAN [Suspect]
     Active Substance: IPTACOPAN
     Indication: C3 glomerulopathy
     Dosage: 200 MG, BID
     Route: 048
     Dates: start: 20240814, end: 20250701
  2. IPTACOPAN [Suspect]
     Active Substance: IPTACOPAN
     Dosage: 200 MG, BID
     Route: 048
     Dates: start: 20250930

REACTIONS (8)
  - C3 glomerulopathy [Recovered/Resolved]
  - Acute kidney injury [Recovered/Resolved]
  - Proteinuria [Recovered/Resolved]
  - Haematuria [Recovered/Resolved]
  - Mitral valve incompetence [Unknown]
  - Mitral valve prolapse [Unknown]
  - Product dose omission issue [Unknown]
  - Product supply issue [Unknown]

NARRATIVE: CASE EVENT DATE: 20250101
